FAERS Safety Report 7887562-7 (Version None)
Quarter: 2011Q4

REPORT INFORMATION
  Report Type: 
  Country: None (occurrence: None)
  Receive Date: 20111103
  Receipt Date: 20111025
  Transmission Date: 20120403
  Serious: No
  Sender: FDA-Public Use
  Company Number: US-BIOGENIDEC-2010BI039892

PATIENT
  Age: 32 Year
  Sex: Female

DRUGS (1)
  1. TYSABRI [Suspect]
     Indication: MULTIPLE SCLEROSIS
     Route: 042
     Dates: start: 20090312

REACTIONS (6)
  - GAIT DISTURBANCE [None]
  - DYSARTHRIA [None]
  - FALL [None]
  - HEADACHE [None]
  - SPEECH DISORDER [None]
  - MULTIPLE SCLEROSIS [None]
